FAERS Safety Report 7125145-7 (Version None)
Quarter: 2010Q4

REPORT INFORMATION
  Report Type: 
  Country: None (occurrence: None)
  Receive Date: 20101129
  Receipt Date: 20101117
  Transmission Date: 20110411
  Serious: Yes (Death)
  Sender: FDA-Public Use
  Company Number: US-SANOFI-AVENTIS-2010SA070422

PATIENT
  Age: 65 Year
  Sex: Male

DRUGS (5)
  1. PLAVIX [Suspect]
     Route: 065
  2. NORVASC [Concomitant]
  3. NOVOLOG [Concomitant]
  4. INSULIN DETEMIR [Concomitant]
  5. HECTOROL [Concomitant]

REACTIONS (1)
  - DEATH [None]
